FAERS Safety Report 23299073 (Version 1)
Quarter: 2023Q4

REPORT INFORMATION
  Report Type: Spontaneous
  Country: US (occurrence: US)
  Receive Date: 20231215
  Receipt Date: 20231215
  Transmission Date: 20240110
  Serious: No
  Sender: FDA-Public Use
  Company Number: US-ENDO PHARMACEUTICALS INC-2022-006447

PATIENT
  Sex: Male

DRUGS (2)
  1. XIAFLEX [Suspect]
     Active Substance: COLLAGENASE CLOSTRIDIUM HISTOLYTICUM
     Indication: Product used for unknown indication
     Dosage: UNK UNKNOWN, UNKNOWN
     Route: 065
  2. VIAGRA [Suspect]
     Active Substance: SILDENAFIL CITRATE
     Indication: Product used for unknown indication
     Dosage: UNK UNKNOWN, UNKNOWN (TOOK COUPLE OF VIAGRA)
     Route: 065

REACTIONS (6)
  - Ejaculation disorder [Unknown]
  - Male orgasmic disorder [Unknown]
  - Testicular retraction [Unknown]
  - Erection increased [Unknown]
  - Genital discolouration [Unknown]
  - Wrong technique in product usage process [Unknown]

NARRATIVE: CASE EVENT DATE: 20220101
